FAERS Safety Report 23538658 (Version 1)
Quarter: 2024Q1

REPORT INFORMATION
  Report Type: Spontaneous
  Country: GB (occurrence: GB)
  Receive Date: 20240219
  Receipt Date: 20240219
  Transmission Date: 20240409
  Serious: Yes (Hospitalization, Disabling, Other)
  Sender: FDA-Public Use
  Company Number: None

PATIENT
  Age: 75 Year
  Sex: Male
  Weight: 108 kg

DRUGS (4)
  1. EDOXABAN [Suspect]
     Active Substance: EDOXABAN
     Indication: Atrial fibrillation
     Dosage: 50 MG, QD (50 MG DAILY, EVENING)
     Route: 065
     Dates: start: 202006, end: 202310
  2. EDOXABAN [Suspect]
     Active Substance: EDOXABAN
     Indication: Atrial flutter
  3. APIXABAN [Concomitant]
     Active Substance: APIXABAN
     Indication: Atrial fibrillation
     Dosage: UNK
     Route: 065
     Dates: start: 202311
  4. APIXABAN [Concomitant]
     Active Substance: APIXABAN
     Indication: Atrial flutter

REACTIONS (10)
  - Fall [Unknown]
  - Skull fracture [Unknown]
  - Craniofacial fracture [Unknown]
  - Cervical vertebral fracture [Unknown]
  - Thoracic vertebral fracture [Unknown]
  - Shoulder fracture [Unknown]
  - Ear injury [Unknown]
  - Penile haemorrhage [Not Recovered/Not Resolved]
  - Subarachnoid haemorrhage [Unknown]
  - Incorrect dose administered [Recovered/Resolved]

NARRATIVE: CASE EVENT DATE: 20200601
